FAERS Safety Report 24319064 (Version 1)
Quarter: 2024Q3

REPORT INFORMATION
  Report Type: Spontaneous
  Country: KR (occurrence: KR)
  Receive Date: 20240913
  Receipt Date: 20240913
  Transmission Date: 20241016
  Serious: Yes (Other)
  Sender: MERCK
  Company Number: KR-009507513-2409KOR004351

PATIENT
  Age: 64 Year
  Sex: Female

DRUGS (1)
  1. KEYTRUDA [Suspect]
     Active Substance: PEMBROLIZUMAB
     Indication: Endometrial cancer stage III
     Dosage: UNK

REACTIONS (2)
  - Metastases to lymph nodes [Unknown]
  - Product use issue [Unknown]

NARRATIVE: CASE EVENT DATE: 20240816
